FAERS Safety Report 6773132-0 (Version None)
Quarter: 2010Q2

REPORT INFORMATION
  Report Type: 
  Country: None (occurrence: None)
  Receive Date: 20100616
  Receipt Date: 20100315
  Transmission Date: 20101027
  Serious: No
  Sender: FDA-Public Use
  Company Number: US-TYCO HEALTHCARE/MALLINCKRODT-T201000855

PATIENT
  Sex: Male

DRUGS (8)
  1. ULTRATAG [Suspect]
     Indication: CARDIAC VENTRICULOGRAM
     Dosage: UNK
     Route: 042
     Dates: start: 20100315, end: 20100315
  2. ULTRA-TECHNEKOW [Concomitant]
     Indication: CARDIAC VENTRICULOGRAM
     Dosage: 20 MCI, SINGLE
     Route: 042
     Dates: start: 20100315, end: 20100315
  3. ACYCLOVIR [Concomitant]
     Dosage: 400 MG, BID
  4. COLACE [Suspect]
     Dosage: 100 MG, BID
  5. COUMADIN [Concomitant]
     Dosage: 7.5 MG, QD
  6. REVLIMID [Concomitant]
     Dosage: 25 MG, QD, DAYS 1-14
  7. VELCADE [Concomitant]
     Dosage: 2-6 MG IV, DAY 1, 4, 8, 11, 20
  8. ZOMETA [Concomitant]
     Dosage: UNK, Q MONTH

REACTIONS (1)
  - DRUG INEFFECTIVE [None]
